FAERS Safety Report 20569428 (Version 5)
Quarter: 2022Q3

REPORT INFORMATION
  Report Type: Report from Study
  Country: DE (occurrence: DE)
  Receive Date: 20220308
  Receipt Date: 20220929
  Transmission Date: 20221027
  Serious: Yes (Hospitalization, Other)
  Sender: FDA-Public Use
  Company Number: DE-SAMSUNG BIOEPIS-SB-2019-21348

PATIENT
  Age: 63 Year
  Sex: Female

DRUGS (5)
  1. ETANERCEPT [Suspect]
     Active Substance: ETANERCEPT
     Indication: Rheumatoid arthritis
     Route: 065
     Dates: start: 201810, end: 201904
  2. SIMPONI [Suspect]
     Active Substance: GOLIMUMAB
     Indication: Rheumatoid arthritis
     Route: 058
     Dates: start: 201601, end: 201603
  3. METHOTREXATE SODIUM [Suspect]
     Active Substance: METHOTREXATE SODIUM
     Indication: Rheumatoid arthritis
     Dosage: BEFORE 11-JAN-2016, STOP BETWEEN 08-JUN-2016 TO 20-JAN-2017
     Route: 065
     Dates: start: 20160111, end: 201608
  4. METHOTREXATE SODIUM [Suspect]
     Active Substance: METHOTREXATE SODIUM
     Dosage: START BETWEEN 08-JUL-2016 TO 20 JAN 2017, STOP BETWEEN 17-JAN-2018 TO 17-JUL-2018
     Route: 065
     Dates: start: 20170120, end: 20180117
  5. RINVOQ [Suspect]
     Active Substance: UPADACITINIB
     Indication: Rheumatoid arthritis
     Route: 065
     Dates: start: 202007, end: 202012

REACTIONS (12)
  - Basal cell carcinoma [Unknown]
  - Pelvic floor muscle weakness [Not Recovered/Not Resolved]
  - Cataract [Unknown]
  - Intervertebral disc protrusion [Recovered/Resolved]
  - Bronchitis [Recovered/Resolved]
  - Anal incontinence [Unknown]
  - Intussusception [Unknown]
  - Depression [Unknown]
  - Cerebellar infarction [Unknown]
  - Squamous cell carcinoma [Unknown]
  - Vomiting [Unknown]
  - Diarrhoea [Unknown]

NARRATIVE: CASE EVENT DATE: 20190101
